FAERS Safety Report 15930345 (Version 1)
Quarter: 2019Q1

REPORT INFORMATION
  Report Type: Spontaneous
  Country: US (occurrence: US)
  Receive Date: 20190115
  Receipt Date: 20190115
  Transmission Date: 20190417
  Serious: No
  Sender: FDA-Public Use
  Company Number: None

PATIENT
  Age: 53 Year
  Sex: Male

DRUGS (8)
  1. VALIUM [Concomitant]
     Active Substance: DIAZEPAM
  2. ACESULFAME [Concomitant]
     Active Substance: ACESULFAME POTASSIUM
  3. MULTI-VITAMINS [Concomitant]
  4. COQ10 [Concomitant]
     Active Substance: UBIDECARENONE
  5. ATORVASTATIN [Concomitant]
     Active Substance: ATORVASTATIN
  6. ZYTIGA [Suspect]
     Active Substance: ABIRATERONE ACETATE
     Indication: PROSTATE CANCER
     Route: 048
     Dates: start: 20170827
  7. FISH OIL [Concomitant]
     Active Substance: FISH OIL
  8. FLOVENT [Concomitant]
     Active Substance: FLUTICASONE PROPIONATE

REACTIONS (2)
  - Fatigue [None]
  - Asthenia [None]
